FAERS Safety Report 9700177 (Version 1)
Quarter: 2013Q4

REPORT INFORMATION
  Report Type: Spontaneous
  Country: US (occurrence: None)
  Receive Date: 20131118
  Receipt Date: 20131118
  Transmission Date: 20140711
  Serious: Yes (Hospitalization)
  Sender: FDA-Public Use
  Company Number: 2013P1020873

PATIENT
  Age: 36 Year
  Sex: Male

DRUGS (4)
  1. ALPRAZOLAM [Suspect]
     Route: 048
  2. OXYCODONE [Suspect]
     Route: 048
  3. AMITRIPTYLINE [Suspect]
     Route: 048
  4. METHAMPHETAMINE [Suspect]

REACTIONS (7)
  - Unresponsive to stimuli [None]
  - Loss of consciousness [None]
  - Dermatitis bullous [None]
  - Hepatotoxicity [None]
  - Drug screen positive [None]
  - Infusion site extravasation [None]
  - Intentional drug misuse [None]
